FAERS Safety Report 9347501 (Version 1)
Quarter: 2013Q2

REPORT INFORMATION
  Report Type: Spontaneous
  Country: US (occurrence: US)
  Receive Date: 20130614
  Receipt Date: 20130614
  Transmission Date: 20140414
  Serious: No
  Sender: FDA-Public Use
  Company Number: US-009507513-1306USA005484

PATIENT
  Age: 24 Year
  Sex: Female

DRUGS (1)
  1. SAPHRIS [Suspect]
     Indication: BIPOLAR DISORDER
     Dosage: 5 MG, QD
     Dates: start: 20130528

REACTIONS (4)
  - Throat irritation [Unknown]
  - Glossodynia [Unknown]
  - Drug prescribing error [Unknown]
  - Incorrect route of drug administration [Unknown]
